FAERS Safety Report 24428812 (Version 1)
Quarter: 2024Q4

REPORT INFORMATION
  Report Type: Report from Study
  Country: TR (occurrence: TR)
  Receive Date: 20241011
  Receipt Date: 20241011
  Transmission Date: 20250115
  Serious: Yes (Death, Life-Threatening, Other)
  Sender: PFIZER
  Company Number: TR-PFIZER INC-PV202400131398

PATIENT

DRUGS (1)
  1. IRINOTECAN HYDROCHLORIDE [Suspect]
     Active Substance: IRINOTECAN HYDROCHLORIDE
     Indication: Small cell lung cancer metastatic
     Dosage: 180 MG/M2, CYCLIC (ON DAY 1 EVERY TWO WEEKS, AS A 90-MIN INTRAVENOUS INFUSION)
     Route: 042

REACTIONS (1)
  - Intestinal perforation [Fatal]
